FAERS Safety Report 11700349 (Version 1)
Quarter: 2015Q4

REPORT INFORMATION
  Report Type: Spontaneous
  Country: US (occurrence: US)
  Receive Date: 20151105
  Receipt Date: 20151105
  Transmission Date: 20160304
  Serious: No
  Sender: FDA-Public Use
  Company Number: US-PFIZER INC-2015367611

PATIENT
  Age: 41 Year
  Sex: Male
  Weight: 73 kg

DRUGS (1)
  1. VIAGRA [Suspect]
     Active Substance: SILDENAFIL CITRATE
     Indication: ERECTILE DYSFUNCTION
     Dosage: 20 MG, TWO TABLETS
     Route: 048
     Dates: start: 20151026, end: 20151026

REACTIONS (2)
  - Intentional product misuse [Unknown]
  - Anorgasmia [Unknown]

NARRATIVE: CASE EVENT DATE: 20151026
